FAERS Safety Report 14953743 (Version 4)
Quarter: 2018Q4

REPORT INFORMATION
  Report Type: Spontaneous
  Country: US (occurrence: US)
  Receive Date: 20180530
  Receipt Date: 20181220
  Transmission Date: 20190204
  Serious: Yes (Hospitalization)
  Sender: FDA-Public Use
  Company Number: US-ACTELION-A-US2018-172547

PATIENT
  Age: 23 Year
  Sex: Female
  Weight: 92.97 kg

DRUGS (3)
  1. OPSUMIT [Suspect]
     Active Substance: MACITENTAN
     Indication: PULMONARY HYPERTENSION
     Dosage: 10 MG, QD
     Route: 048
     Dates: start: 20161207
  2. REMODULIN [Concomitant]
     Active Substance: TREPROSTINIL
  3. ADCIRCA [Concomitant]
     Active Substance: TADALAFIL

REACTIONS (5)
  - Atelectasis [Unknown]
  - Lung hypoinflation [Unknown]
  - Fluid overload [Unknown]
  - Acute respiratory failure [Recovered/Resolved]
  - Cardiomegaly [Unknown]

NARRATIVE: CASE EVENT DATE: 20180512
